FAERS Safety Report 6137438-0 (Version None)
Quarter: 2009Q1

REPORT INFORMATION
  Report Type: 
  Country: None (occurrence: None)
  Receive Date: 20090330
  Receipt Date: 20090325
  Transmission Date: 20090719
  Serious: Yes (Hospitalization, Other)
  Sender: FDA-Public Use
  Company Number: US-MERCK-0804USA03000

PATIENT
  Age: 39 Year
  Sex: Female

DRUGS (1)
  1. FOSAMAX [Suspect]
     Indication: OSTEOPENIA
     Route: 048
     Dates: start: 20031016, end: 20050201

REACTIONS (34)
  - ARTHRALGIA [None]
  - ARTHRITIS [None]
  - AUTONOMIC NERVOUS SYSTEM IMBALANCE [None]
  - BACK PAIN [None]
  - BLADDER DISORDER [None]
  - BLOOD DISORDER [None]
  - BREAST LUMP REMOVAL [None]
  - BRONCHITIS [None]
  - DEPRESSION [None]
  - FALL [None]
  - FIBROMYALGIA [None]
  - GALLBLADDER DISORDER [None]
  - GASTROOESOPHAGEAL REFLUX DISEASE [None]
  - HYPERTENSION [None]
  - HYPERTONIC BLADDER [None]
  - HYPOAESTHESIA TEETH [None]
  - ILL-DEFINED DISORDER [None]
  - INJURY [None]
  - JAW DISORDER [None]
  - JAW FRACTURE [None]
  - MEMORY IMPAIRMENT [None]
  - MITRAL VALVE PROLAPSE [None]
  - MULTIPLE ALLERGIES [None]
  - NEURALGIA [None]
  - OSTEONECROSIS [None]
  - OSTEOPOROSIS [None]
  - PAIN [None]
  - PANIC ATTACK [None]
  - PHARYNGITIS [None]
  - SLEEP DISORDER [None]
  - SPINAL DISORDER [None]
  - TEMPOROMANDIBULAR JOINT SYNDROME [None]
  - TRISMUS [None]
  - VAGINAL DISORDER [None]
